FAERS Safety Report 16038392 (Version 1)
Quarter: 2019Q1

REPORT INFORMATION
  Report Type: Spontaneous
  Country: GR (occurrence: GR)
  Receive Date: 20190305
  Receipt Date: 20190305
  Transmission Date: 20190418
  Serious: Yes (Hospitalization, Other)
  Sender: FDA-Public Use
  Company Number: GR-GILEAD-2019-0394539

PATIENT
  Age: 32 Year
  Sex: Female
  Weight: 50 kg

DRUGS (4)
  1. ISENTRESS [Suspect]
     Active Substance: RALTEGRAVIR POTASSIUM
     Indication: HIV INFECTION
     Dosage: 400 MILLIGRAM, 1X2
     Route: 048
  2. ATAZANAVIR. [Suspect]
     Active Substance: ATAZANAVIR
     Indication: PRODUCT USED FOR UNKNOWN INDICATION
     Route: 042
  3. BENZATHINE BENZYLPENICILLIN [Concomitant]
     Active Substance: PENICILLIN G BENZATHINE
     Dosage: 2400000 IU IN THREE DOSES WEEKLY
  4. TRUVADA [Suspect]
     Active Substance: EMTRICITABINE\TENOFOVIR DISOPROXIL FUMARATE
     Indication: HIV INFECTION
     Dosage: 1X1
     Route: 065

REACTIONS (3)
  - Transfusion [Unknown]
  - Maternal exposure during pregnancy [Recovered/Resolved]
  - Adverse event [Unknown]
